FAERS Safety Report 10449180 (Version 1)
Quarter: 2014Q3

REPORT INFORMATION
  Report Type: Spontaneous
  Country: US (occurrence: None)
  Receive Date: 20140911
  Receipt Date: 20140911
  Transmission Date: 20150326
  Serious: Yes (Hospitalization, Other)
  Sender: FDA-Public Use
  Company Number: None

PATIENT
  Age: 74 Year
  Sex: Male
  Weight: 79.83 kg

DRUGS (7)
  1. FLAX SEED [Concomitant]
     Active Substance: FLAX SEED
  2. MULTI VITAMIN [Concomitant]
     Active Substance: VITAMINS
  3. SMZ-TMP DS TABS AUROBINDO PHARM [Suspect]
     Active Substance: SULFAMETHOXAZOLE\TRIMETHOPRIM
     Indication: PARONYCHIA
     Route: 048
     Dates: start: 20140815, end: 20140821
  4. Q 10 [Concomitant]
  5. VITAMIN B [Concomitant]
     Active Substance: VITAMIN B
  6. VITAMIN D [Concomitant]
     Active Substance: CHOLECALCIFEROL
  7. VITAMIN C [Concomitant]
     Active Substance: ASCORBIC ACID

REACTIONS (10)
  - Chromaturia [None]
  - Weight decreased [None]
  - Neck pain [None]
  - Heart rate increased [None]
  - Blood glucose increased [None]
  - Headache [None]
  - Chills [None]
  - Pyrexia [None]
  - Decreased appetite [None]
  - Asthenia [None]

NARRATIVE: CASE EVENT DATE: 20140817
